FAERS Safety Report 7357100-6 (Version None)
Quarter: 2011Q1

REPORT INFORMATION
  Report Type: 
  Country: None (occurrence: None)
  Receive Date: 20110317
  Receipt Date: 20100923
  Transmission Date: 20110831
  Serious: Yes (Hospitalization, Disabling, Other)
  Sender: FDA-Public Use
  Company Number: US-BAYER-201025409NA

PATIENT
  Sex: Female
  Weight: 49 kg

DRUGS (20)
  1. TRIAMCINOLONE [Concomitant]
     Dates: start: 20070701
  2. AZITHROMYCIN [Concomitant]
     Dates: start: 20051201
  3. OCELLA [Suspect]
     Indication: CONTRACEPTION
     Dosage: UNK
     Dates: start: 20080822, end: 20090807
  4. CARISOPRODOL [Concomitant]
     Dates: start: 20070201
  5. PREVPAC [Concomitant]
     Dates: start: 20071001
  6. ADVIL LIQUI-GELS [Concomitant]
  7. YAZ [Suspect]
     Indication: CONTRACEPTION
     Route: 048
  8. YASMIN [Suspect]
     Indication: CONTRACEPTION
     Dosage: UNK
     Route: 048
     Dates: start: 20060601
  9. BENZONATATE [Concomitant]
  10. HYDROCODONE BITARTRATE AND ACETAMINOPHEN [Concomitant]
  11. YASMIN [Suspect]
     Dosage: UNK
     Dates: start: 20080404, end: 20080629
  12. LIDOCAINE HYDROCHLORIDE [Concomitant]
     Dates: start: 20070701
  13. PHENAZOPYRIDINE HCL TAB [Concomitant]
  14. BENZONATATE [Concomitant]
  15. HYDROXYZINE HCL [Concomitant]
     Dates: start: 20071201
  16. HYDROCODONE BITARTRATE AND ACETAMINOPHEN [Concomitant]
  17. HYDROCORTISONE [Concomitant]
  18. ANTIBIOTICS [Concomitant]
     Indication: HELICOBACTER INFECTION
  19. PROTONIX [Concomitant]
     Dates: start: 20080301
  20. MOTRIN [Concomitant]

REACTIONS (6)
  - ABDOMINAL PAIN UPPER [None]
  - WEIGHT DECREASED [None]
  - GALLBLADDER DISORDER [None]
  - BILIARY DYSKINESIA [None]
  - NAUSEA [None]
  - APHAGIA [None]
